FAERS Safety Report 24032119 (Version 3)
Quarter: 2024Q3

REPORT INFORMATION
  Report Type: Spontaneous
  Country: US (occurrence: US)
  Receive Date: 20240630
  Receipt Date: 20240709
  Transmission Date: 20241016
  Serious: Yes (Hospitalization)
  Sender: AMGEN
  Company Number: US-AMGEN-USASP2024119759

PATIENT
  Age: 77 Year
  Sex: Female

DRUGS (3)
  1. IMDELLTRA [Suspect]
     Active Substance: TARLATAMAB-DLLE
     Indication: Small cell lung cancer
     Dosage: 1 MILLIGRAM, STEP UP DOSE
     Route: 065
     Dates: start: 20240614, end: 20240614
  2. IMDELLTRA [Suspect]
     Active Substance: TARLATAMAB-DLLE
     Dosage: UNK, CYCLE 1, DAY 8 (TEMPORARILY HELD, ABOUT 30 MINUTES)
     Route: 065
     Dates: start: 20240621, end: 20240621
  3. IMDELLTRA [Suspect]
     Active Substance: TARLATAMAB-DLLE
     Dosage: UNK, CYCLE 1, DAY 8
     Route: 065
     Dates: start: 20240621

REACTIONS (9)
  - Chest discomfort [Unknown]
  - Blood pressure increased [Unknown]
  - Headache [Unknown]
  - Flushing [Unknown]
  - Swelling [Unknown]
  - Erythema [Unknown]
  - Body temperature increased [Unknown]
  - Chest pain [Unknown]
  - Hyperhidrosis [Recovered/Resolved]

NARRATIVE: CASE EVENT DATE: 20240614
